FAERS Safety Report 6545472-1 (Version None)
Quarter: 2010Q1

REPORT INFORMATION
  Report Type: 
  Country: None (occurrence: None)
  Receive Date: 20100121
  Receipt Date: 20100111
  Transmission Date: 20100710
  Serious: Yes (Other)
  Sender: FDA-Public Use
  Company Number: FR-ELI_LILLY_AND_COMPANY-FR201001001487

PATIENT
  Sex: Female
  Weight: 73 kg

DRUGS (3)
  1. GEMCITABINE HCL [Suspect]
     Indication: BREAST CANCER METASTATIC
     Dosage: 100 MG/M2, D1+8 EVERY 3 WEEKS
     Route: 042
     Dates: start: 20091123
  2. VINFLUNINE [Suspect]
     Indication: BREAST CANCER METASTATIC
     Dosage: 320 MG/M2, D1 EVERY 3 WEEKS
     Route: 042
     Dates: start: 20091123
  3. MORPHINE [Concomitant]
     Indication: ARTHRALGIA
     Route: 042
     Dates: start: 20091126, end: 20091127

REACTIONS (1)
  - HYPOKALAEMIA [None]
